FAERS Safety Report 8610637-1 (Version None)
Quarter: 2012Q3

REPORT INFORMATION
  Report Type: 
  Country: None (occurrence: None)
  Receive Date: 20120808
  Receipt Date: 20120726
  Transmission Date: 20120928
  Serious: Yes (Hospitalization)
  Sender: FDA-Public Use
  Company Number: JPI-P-022801

PATIENT
  Age: 67 Year
  Sex: Female
  Weight: 76.9301 kg

DRUGS (5)
  1. CARVEDILOL [Concomitant]
  2. HYDROCHLOROTHIAZIDE [Concomitant]
  3. XYREM [Suspect]
     Indication: CATAPLEXY
     Dosage: ORAL
     Route: 048
     Dates: start: 20111101
  4. ACETYLSALICYLIC ACID SRT [Concomitant]
  5. LISINOPRIL [Concomitant]

REACTIONS (8)
  - INITIAL INSOMNIA [None]
  - INSOMNIA [None]
  - IRRITABILITY [None]
  - ANXIETY [None]
  - DYSPNOEA [None]
  - ATRIAL CONDUCTION TIME PROLONGATION [None]
  - HEART RATE INCREASED [None]
  - DIZZINESS [None]
